FAERS Safety Report 5562714-X (Version None)
Quarter: 2007Q4

REPORT INFORMATION
  Report Type: 
  Country: None (occurrence: None)
  Receive Date: 20071217
  Receipt Date: 20071205
  Transmission Date: 20080405
  Serious: Yes (Other)
  Sender: FDA-Public Use
  Company Number: GB-BAYER-200711326BNE

PATIENT
  Age: 35 Year
  Sex: Female

DRUGS (1)
  1. CANESTEN PESSARY [Suspect]
     Indication: CANDIDIASIS

REACTIONS (1)
  - ABORTION SPONTANEOUS [None]
